FAERS Safety Report 5291492-7 (Version None)
Quarter: 2007Q2

REPORT INFORMATION
  Report Type: 
  Country: None (occurrence: None)
  Receive Date: 20070403
  Receipt Date: 20070327
  Transmission Date: 20071010
  Serious: Yes (Hospitalization)
  Sender: FDA-Public Use
  Company Number: 154478USA

PATIENT
  Age: 16 Year
  Sex: Female

DRUGS (6)
  1. CLOZAPINE [Suspect]
     Indication: BIPOLAR DISORDER
     Dosage: (625 MG), ORAL
     Route: 048
     Dates: start: 20060201
  2. CLOZAPINE [Suspect]
     Indication: SCHIZOPHRENIA
     Dosage: (625 MG), ORAL
     Route: 048
     Dates: start: 20060201
  3. VALPROATE SODIUM [Suspect]
     Indication: MANIA
     Dates: start: 20070201
  4. QUETIAPINE FUMARATE [Suspect]
     Indication: MANIA
     Dates: start: 20070201
  5. LAMOTRIGINE [Suspect]
     Indication: MANIA
     Dates: start: 20070201
  6. LITHIUM CARBONATE [Suspect]
     Indication: MANIA
     Dates: start: 20070201

REACTIONS (8)
  - ABASIA [None]
  - APHASIA [None]
  - DROOLING [None]
  - DRUG TOXICITY [None]
  - INCOHERENT [None]
  - MANIA [None]
  - SELF-MEDICATION [None]
  - TREATMENT NONCOMPLIANCE [None]
